FAERS Safety Report 7624664-4 (Version None)
Quarter: 2011Q3

REPORT INFORMATION
  Report Type: 
  Country: None (occurrence: None)
  Receive Date: 20110720
  Receipt Date: 20110707
  Transmission Date: 20111222
  Serious: Yes (Other)
  Sender: FDA-Public Use
  Company Number: PHHY2011US61153

PATIENT
  Sex: Male

DRUGS (1)
  1. EXJADE [Suspect]
     Dosage: UNK UKN, UNK
     Route: 065

REACTIONS (9)
  - JOINT SWELLING [None]
  - INSOMNIA [None]
  - WEIGHT INCREASED [None]
  - OEDEMA PERIPHERAL [None]
  - FATIGUE [None]
  - JAUNDICE [None]
  - OEDEMA [None]
  - ABDOMINAL DISTENSION [None]
  - DIARRHOEA [None]
